FAERS Safety Report 21007391 (Version 1)
Quarter: 2022Q2

REPORT INFORMATION
  Report Type: Spontaneous
  Country: US (occurrence: US)
  Receive Date: 20220626
  Receipt Date: 20220626
  Transmission Date: 20220721
  Serious: No
  Sender: FDA-Public Use
  Company Number: US-GLENMARK PHARMACEUTICALS-2022GMK071970

PATIENT

DRUGS (1)
  1. ATOVAQUONE [Suspect]
     Active Substance: ATOVAQUONE
     Indication: Babesiosis
     Dosage: UNK UNK, BID
     Route: 048

REACTIONS (2)
  - Product storage error [Unknown]
  - Product use in unapproved indication [Unknown]
